FAERS Safety Report 24180072 (Version 1)
Quarter: 2024Q3

REPORT INFORMATION
  Report Type: Spontaneous
  Country: US (occurrence: None)
  Receive Date: 20240806
  Receipt Date: 20240806
  Transmission Date: 20241017
  Serious: Yes (Hospitalization)
  Sender: Public
  Company Number: None

PATIENT
  Sex: Male
  Weight: 94.9 kg

DRUGS (5)
  1. CISPLATIN [Suspect]
     Active Substance: CISPLATIN
     Dates: start: 20240701, end: 20240729
  2. COMPAZINE [Concomitant]
     Active Substance: PROCHLORPERAZINE MALEATE
  3. ONDANSETRON [Concomitant]
     Active Substance: ONDANSETRON
  4. OXYCODONE [Concomitant]
     Active Substance: OXYCODONE
  5. HYDROCHLOROTHIAZIDE\VALSARTAN [Concomitant]
     Active Substance: HYDROCHLOROTHIAZIDE\VALSARTAN

REACTIONS (17)
  - Failure to thrive [None]
  - Dysphonia [None]
  - Mucosal dryness [None]
  - Pharyngeal inflammation [None]
  - Asthenia [None]
  - Neck pain [None]
  - Abdominal pain [None]
  - Nausea [None]
  - Vomiting [None]
  - Fatigue [None]
  - White blood cell count decreased [None]
  - Neutrophil count decreased [None]
  - Blood magnesium decreased [None]
  - Diverticulum [None]
  - Splenomegaly [None]
  - Nephrolithiasis [None]
  - Dysphagia [None]

NARRATIVE: CASE EVENT DATE: 20240803
